FAERS Safety Report 12897754 (Version 2)
Quarter: 2016Q4

REPORT INFORMATION
  Report Type: Report from Study
  Country: None (occurrence: CA)
  Receive Date: 20161031
  Receipt Date: 20161110
  Transmission Date: 20170207
  Serious: Yes (Hospitalization)
  Sender: FDA-Public Use
  Company Number: CA-ABBVIE-16P-028-1765902-00

PATIENT
  Age: 63 Year
  Sex: Female

DRUGS (1)
  1. HOLKIRA PAK [Suspect]
     Active Substance: DASABUVIR\OMBITASVIR\PARITAPREVIR\RITONAVIR
     Indication: HEPATITIS C
     Dosage: TWO 12.5/75/50 MG TABLETS ONCE DAILY IN AM AND ONE 250 MG TABLET TWICE DAILY IN AM AND PM
     Route: 048
     Dates: start: 20161013

REACTIONS (4)
  - Abdominal distension [Unknown]
  - Intestinal obstruction [Recovered/Resolved]
  - Peripheral swelling [Unknown]
  - Drug dose omission [Unknown]

NARRATIVE: CASE EVENT DATE: 201610
